FAERS Safety Report 6284204-1 (Version None)
Quarter: 2009Q3

REPORT INFORMATION
  Report Type: 
  Country: None (occurrence: None)
  Receive Date: 20090722
  Receipt Date: 20090715
  Transmission Date: 20100115
  Serious: Yes (Hospitalization)
  Sender: FDA-Public Use
  Company Number: GXKR2009DE08048

PATIENT
  Age: 87 Year
  Sex: Female

DRUGS (11)
  1. ASPIRIN [Suspect]
     Indication: CORONARY ARTERY DISEASE
     Dosage: 100 MG, QD
     Dates: end: 20090521
  2. DOXYCYCLINE [Suspect]
     Indication: URINARY TRACT INFECTION
     Dosage: 100 MG, QD
     Dates: start: 20090515, end: 20090524
  3. ISOPHANE INSULIN [Concomitant]
  4. FERRO SANOL COMP (CYANOBALAMIN, FOLIC ACID, HYDROXOCOBALAMIN, IRON) [Concomitant]
  5. METOPROLOL SUCCINATE [Concomitant]
  6. NOVALGIN /SCH/ (METAMIZOLE SODIUM MONOHYDRATE) [Concomitant]
  7. RAMIPRIL [Concomitant]
  8. PANTOPRAZOLE SODIUM [Concomitant]
  9. TORSEMIDE [Concomitant]
  10. XIPAMIDE (XIPAMIDE) [Concomitant]
  11. ZOPICLONE (ZOPICLONE) [Concomitant]

REACTIONS (1)
  - DIARRHOEA HAEMORRHAGIC [None]
